FAERS Safety Report 7149088-8 (Version None)
Quarter: 2010Q4

REPORT INFORMATION
  Report Type: 
  Country: None (occurrence: None)
  Receive Date: 20101209
  Receipt Date: 20101130
  Transmission Date: 20110411
  Serious: Yes (Hospitalization)
  Sender: FDA-Public Use
  Company Number: ES-BRISTOL-MYERS SQUIBB COMPANY-15424914

PATIENT
  Age: 62 Year
  Sex: Female

DRUGS (12)
  1. CETUXIMAB [Suspect]
     Indication: HEAD AND NECK CANCER
     Dosage: RECENT INF:02NOV2010
     Route: 042
     Dates: start: 20100907
  2. CISPLATIN [Suspect]
     Indication: HEAD AND NECK CANCER
     Dosage: RECENT INF:09AUG2010
     Route: 042
     Dates: start: 20100628, end: 20100809
  3. DOCETAXEL [Suspect]
     Indication: HEAD AND NECK CANCER
     Dosage: RECENT INF:09AUG2010
     Route: 042
     Dates: start: 20100628, end: 20100809
  4. FLUOROURACIL [Suspect]
     Indication: HEAD AND NECK CANCER
     Dosage: RCENET INF:09AUG2010
     Route: 042
     Dates: start: 20100628, end: 20100809
  5. METFORMIN HCL [Concomitant]
  6. DURAGESIC-100 [Concomitant]
     Dosage: 1DF:12.5 UNITS NOT SPECIFIED
  7. VITAMIN B1 TAB [Concomitant]
  8. VITAMIN B6 [Concomitant]
  9. VITAMIN B-12 [Concomitant]
  10. MAGNESIUM [Concomitant]
  11. OMEPRAZOLE [Concomitant]
     Dosage: 1DF:1 CAPS
  12. ACFOL [Concomitant]
     Dosage: 1DF: 1 CAPS

REACTIONS (3)
  - DEHYDRATION [None]
  - ELECTROLYTE IMBALANCE [None]
  - ODYNOPHAGIA [None]
